FAERS Safety Report 16061456 (Version 1)
Quarter: 2019Q1

REPORT INFORMATION
  Report Type: Spontaneous
  Country: US (occurrence: US)
  Receive Date: 20190312
  Receipt Date: 20190312
  Transmission Date: 20190418
  Serious: No
  Sender: FDA-Public Use
  Company Number: US-ROCHE-2213796

PATIENT
  Sex: Female
  Weight: 83.99 kg

DRUGS (3)
  1. TAXOL [Concomitant]
     Active Substance: PACLITAXEL
     Dosage: ONGOING: NO
     Route: 065
  2. AVASTIN [Suspect]
     Active Substance: BEVACIZUMAB
     Indication: OVARIAN CANCER
     Dosage: ONGOING: NO
     Route: 042
     Dates: end: 20180103
  3. AVASTIN [Suspect]
     Active Substance: BEVACIZUMAB
     Dosage: LAST DOSE GIVEN 18-OCT-2018; ONGOING: UNKNOWN
     Route: 042
     Dates: start: 20181018

REACTIONS (1)
  - Proteinuria [Not Recovered/Not Resolved]
